FAERS Safety Report 24409665 (Version 1)
Quarter: 2024Q4

REPORT INFORMATION
  Report Type: Spontaneous
  Country: CN (occurrence: CN)
  Receive Date: 20241008
  Receipt Date: 20241008
  Transmission Date: 20250114
  Serious: Yes (Disabling)
  Sender: BEIGENE
  Company Number: CN-BEIGENE-BGN-2024-015578

PATIENT

DRUGS (6)
  1. TISLELIZUMAB [Suspect]
     Active Substance: TISLELIZUMAB
     Indication: Nasopharyngeal cancer
     Dosage: 200 MILLIGRAM, Q3WK
     Route: 041
     Dates: start: 20240711
  2. TISLELIZUMAB [Suspect]
     Active Substance: TISLELIZUMAB
     Dosage: 200 MILLIGRAM, Q3WK
     Route: 041
     Dates: start: 20240811
  3. CISPLATIN [Suspect]
     Active Substance: CISPLATIN
     Indication: Nasopharyngeal cancer
     Dosage: 35 MILLIGRAM, Q3WK, D1-3
     Dates: start: 20240711
  4. GEMCITABINE [Concomitant]
     Active Substance: GEMCITABINE
     Indication: Nasopharyngeal cancer
     Dosage: 1.4 GRAM, Q3WK
     Dates: start: 20240711
  5. GEMCITABINE [Concomitant]
     Active Substance: GEMCITABINE
     Dosage: 1.2 GRAM, Q3WK, D1, D8
     Dates: start: 20240811
  6. CARBOPLATIN [Concomitant]
     Active Substance: CARBOPLATIN
     Indication: Nasopharyngeal cancer
     Dosage: 260 MILLIGRAM, Q3WK
     Dates: start: 20240811

REACTIONS (3)
  - Myocarditis [Recovering/Resolving]
  - Hepatic enzyme increased [Recovering/Resolving]
  - Muscular weakness [Recovering/Resolving]

NARRATIVE: CASE EVENT DATE: 20240914
